FAERS Safety Report 7328818-6 (Version None)
Quarter: 2011Q1

REPORT INFORMATION
  Report Type: 
  Country: None (occurrence: None)
  Receive Date: 20110303
  Receipt Date: 20110221
  Transmission Date: 20110831
  Serious: Yes (Hospitalization, Other)
  Sender: FDA-Public Use
  Company Number: GB-ROCHE-755972

PATIENT
  Sex: Female
  Weight: 66 kg

DRUGS (2)
  1. LETROZOLE [Concomitant]
     Indication: BREAST CANCER
     Dosage: REPORTED AS 2.5MG DAILY
     Route: 048
     Dates: start: 20101001
  2. HERCEPTIN [Suspect]
     Indication: BREAST CANCER
     Route: 042
     Dates: start: 20101104, end: 20110127

REACTIONS (6)
  - PANCREATITIS [None]
  - CHOLELITHIASIS [None]
  - BLOOD BILIRUBIN INCREASED [None]
  - BILIARY DILATATION [None]
  - BLOOD ALKALINE PHOSPHATASE INCREASED [None]
  - ALANINE AMINOTRANSFERASE INCREASED [None]
